FAERS Safety Report 11371586 (Version 2)
Quarter: 2016Q1

REPORT INFORMATION
  Report Type: Spontaneous
  Country: US (occurrence: US)
  Receive Date: 20150812
  Receipt Date: 20160122
  Transmission Date: 20160525
  Serious: Yes (Hospitalization, Other)
  Sender: FDA-Public Use
  Company Number: US-DSJP-DSU-2015-120487

PATIENT

DRUGS (3)
  1. BENICAR [Suspect]
     Active Substance: OLMESARTAN MEDOXOMIL
     Indication: HYPERTENSION
     Dosage: 20 TO 40MG 1 TAB DAILY
     Route: 048
     Dates: start: 2010, end: 2015
  2. BENICAR [Suspect]
     Active Substance: OLMESARTAN MEDOXOMIL
     Dosage: UNK
  3. BENICAR [Suspect]
     Active Substance: OLMESARTAN MEDOXOMIL
     Dosage: 20-40 MG 1 TAB DAILY
     Route: 048
     Dates: start: 2004, end: 2006

REACTIONS (5)
  - Malabsorption [Not Recovered/Not Resolved]
  - Depression [Unknown]
  - Gastric ulcer [Unknown]
  - Intestinal obstruction [Unknown]
  - Renal failure [Unknown]
